FAERS Safety Report 7717630-1 (Version None)
Quarter: 2011Q3

REPORT INFORMATION
  Report Type: 
  Country: None (occurrence: None)
  Receive Date: 20110830
  Receipt Date: 20110830
  Transmission Date: 20111222
  Serious: Yes (Other)
  Sender: FDA-Public Use
  Company Number: None

PATIENT
  Age: 39 Year
  Sex: Male
  Weight: 102.05 kg

DRUGS (2)
  1. VERSED [Suspect]
     Indication: SEDATION
     Dosage: VERSED 8MG
     Route: 042
     Dates: start: 20110826, end: 20110826
  2. FENTANYL [Concomitant]
     Dosage: FENTANYL 150MCG
     Route: 042

REACTIONS (3)
  - HYPOTENSION [None]
  - FLUSHING [None]
  - TACHYCARDIA [None]
